FAERS Safety Report 5226864-X (Version None)
Quarter: 2007Q1

REPORT INFORMATION
  Report Type: 
  Country: None (occurrence: None)
  Receive Date: 20070202
  Receipt Date: 20070124
  Transmission Date: 20070707
  Serious: Yes (Other)
  Sender: FDA-Public Use
  Company Number: US-JNJFOC-20070106893

PATIENT
  Sex: Female
  Weight: 88.91 kg

DRUGS (15)
  1. FENTANYL TRANSDERMAL SYSTEM [Suspect]
     Route: 062
  2. FENTANYL TRANSDERMAL SYSTEM [Suspect]
     Indication: FIBROMYALGIA
     Route: 062
  3. FENTANYL TRANSDERMAL SYSTEM [Suspect]
     Indication: OSTEOARTHRITIS
     Route: 062
  4. CYMBALTA [Concomitant]
     Route: 048
  5. CYMBALTA [Concomitant]
     Indication: DEPRESSION
     Route: 048
  6. PROTONIX [Concomitant]
     Indication: GASTROINTESTINAL DISORDER
     Route: 048
  7. LISINOPRIL [Concomitant]
     Indication: BLOOD PRESSURE
     Route: 048
  8. TRICOR [Concomitant]
     Indication: BLOOD CHOLESTEROL
     Route: 048
  9. WELLBUTRIN [Concomitant]
     Indication: DEPRESSION
     Route: 048
  10. AVANDIA [Concomitant]
     Indication: DRUG USE FOR UNKNOWN INDICATION
     Route: 048
  11. ZOCOR [Concomitant]
     Indication: BLOOD CHOLESTEROL
     Route: 048
  12. ZYRTEC [Concomitant]
     Indication: MULTIPLE ALLERGIES
     Route: 048
  13. TRAZODONE HCL [Concomitant]
     Indication: SLEEP DISORDER
     Route: 048
  14. AMBIEN [Concomitant]
     Indication: SLEEP DISORDER
     Dosage: AS NEEDED
     Route: 048
  15. BACLOFEN [Concomitant]
     Indication: PAIN
     Route: 048

REACTIONS (5)
  - DRUG INEFFECTIVE [None]
  - FALL [None]
  - OSTEOPOROSIS [None]
  - RIB FRACTURE [None]
  - SCOLIOSIS [None]
